FAERS Safety Report 7372572-9 (Version None)
Quarter: 2011Q1

REPORT INFORMATION
  Report Type: 
  Country: None (occurrence: None)
  Receive Date: 20110324
  Receipt Date: 20110316
  Transmission Date: 20110831
  Serious: Yes (Hospitalization)
  Sender: FDA-Public Use
  Company Number: DE-MERCK-1103DEU00074

PATIENT
  Age: 73 Year
  Sex: Female

DRUGS (2)
  1. TAFLUPROST [Suspect]
     Indication: OPEN ANGLE GLAUCOMA
     Route: 047
     Dates: start: 20101001, end: 20110202
  2. COSOPT [Suspect]
     Indication: OPEN ANGLE GLAUCOMA
     Route: 047
     Dates: start: 20080101

REACTIONS (1)
  - ANGLE CLOSURE GLAUCOMA [None]
